FAERS Safety Report 9124720 (Version 1)
Quarter: 2013Q1

REPORT INFORMATION
  Report Type: Spontaneous
  Country: FR (occurrence: FR)
  Receive Date: 20130116
  Receipt Date: 20130116
  Transmission Date: 20140127
  Serious: Yes (Hospitalization)
  Sender: FDA-Public Use
  Company Number: FR-009507513-1301FRA003771

PATIENT
  Age: 78 Year
  Sex: Male

DRUGS (8)
  1. COSOPT [Suspect]
     Dosage: 1 DF, QD
     Route: 047
  2. COVERSYL [Suspect]
     Dosage: 2.5 MG, QD
     Route: 048
     Dates: end: 20120612
  3. PRETERAX [Suspect]
     Dosage: 1 DF, QD
     Route: 048
     Dates: start: 20120612
  4. KARDEGIC [Suspect]
     Dosage: 75 MG, QD
     Route: 048
  5. METFORMIN [Suspect]
     Dosage: UNK
     Route: 048
  6. PERMIXON [Suspect]
     Dosage: 160 MG, BID
     Route: 048
  7. IMOVANE [Suspect]
     Dosage: 7.5 MG, QD
     Route: 048
  8. LUMIGAN [Suspect]
     Dosage: 1 DF, QD
     Route: 047

REACTIONS (3)
  - Malaise [Unknown]
  - Bundle branch block left [None]
  - Orthostatic hypotension [None]
